FAERS Safety Report 19895199 (Version 2)
Quarter: 2021Q4

REPORT INFORMATION
  Report Type: Other
  Country: US (occurrence: None)
  Receive Date: 20210929
  Receipt Date: 20211108
  Transmission Date: 20220303
  Serious: No
  Sender: FDA-Public Use
  Company Number: US-ROCHE-2922378

PATIENT
  Age: 58 Year
  Sex: Female
  Weight: 43.130 kg

DRUGS (18)
  1. OCREVUS [Suspect]
     Active Substance: OCRELIZUMAB
     Indication: Relapsing multiple sclerosis
     Dosage: INFUSE 300 MG IV DOSE Q 2 WEEKS?DATE OF TREATMENT:26/MAR/2021,  04/OCT/2021
     Route: 042
     Dates: start: 20210409
  2. OCREVUS [Suspect]
     Active Substance: OCRELIZUMAB
     Indication: Secondary progressive multiple sclerosis
     Dosage: INFUSE 600 MG DOSE Q 6 MONTH
     Route: 042
     Dates: start: 202104
  3. MODAFINIL [Concomitant]
     Active Substance: MODAFINIL
     Indication: Fatigue
     Route: 048
  4. OMEPRAZOLE [Concomitant]
     Active Substance: OMEPRAZOLE
     Indication: Dyspepsia
     Route: 048
  5. CYMBALTA [Concomitant]
     Active Substance: DULOXETINE HYDROCHLORIDE
     Route: 048
  6. OXYBUTYNIN [Concomitant]
     Active Substance: OXYBUTYNIN
     Route: 048
  7. ARIPIPRAZOLE [Concomitant]
     Active Substance: ARIPIPRAZOLE
     Route: 048
  8. TRAZODONE [Concomitant]
     Active Substance: TRAZODONE HYDROCHLORIDE
     Dosage: ONE HALF TO TWO 100MG TABLETS BEFORE BED ;ONGOING: YES
     Route: 048
  9. BUSPIRONE [Concomitant]
     Active Substance: BUSPIRONE HYDROCHLORIDE
     Route: 048
  10. ALPRAZOLAM [Concomitant]
     Active Substance: ALPRAZOLAM
     Route: 048
  11. ALBUTEROL [Concomitant]
     Active Substance: ALBUTEROL
  12. FLONASE [Concomitant]
     Active Substance: FLUTICASONE PROPIONATE
  13. RIZATRIPTAN [Concomitant]
     Active Substance: RIZATRIPTAN
  14. PROVIGIL [Concomitant]
     Active Substance: MODAFINIL
  15. REMERON [Concomitant]
     Active Substance: MIRTAZAPINE
  16. IBUPROFEN [Concomitant]
     Active Substance: IBUPROFEN
  17. VITAMIN D3 [Concomitant]
     Active Substance: CHOLECALCIFEROL
  18. TRAZODONE [Concomitant]
     Active Substance: TRAZODONE HYDROCHLORIDE

REACTIONS (5)
  - Herpes zoster [Recovered/Resolved with Sequelae]
  - Pain [Unknown]
  - Arthralgia [Unknown]
  - Osteoporosis [Not Recovered/Not Resolved]
  - Pruritus [Unknown]

NARRATIVE: CASE EVENT DATE: 20210701
